FAERS Safety Report 4809065-6 (Version None)
Quarter: 2005Q4

REPORT INFORMATION
  Report Type: 
  Country: None (occurrence: None)
  Receive Date: 20051021
  Receipt Date: 20040730
  Transmission Date: 20060501
  Serious: Yes (Life-Threatening, Hospitalization)
  Sender: FDA-Public Use
  Company Number: GBS040815347

PATIENT
  Age: 49 Year
  Sex: Female

DRUGS (3)
  1. OLANZAPINE [Suspect]
     Indication: DEPRESSION
     Dosage: 10 MG
     Dates: start: 20040401, end: 20040707
  2. FLUOXETINE [Concomitant]
  3. PARACETAMOL (PARACETAMOL) [Concomitant]

REACTIONS (2)
  - DEEP VEIN THROMBOSIS [None]
  - PULMONARY EMBOLISM [None]
